FAERS Safety Report 26071497 (Version 1)
Quarter: 2025Q4

REPORT INFORMATION
  Report Type: Spontaneous
  Country: US (occurrence: US)
  Receive Date: 20251120
  Receipt Date: 20251120
  Transmission Date: 20260117
  Serious: Yes (Hospitalization, Disabling)
  Sender: NOVARTIS
  Company Number: US-002147023-NVSC2025US175467

PATIENT
  Age: 43 Year
  Sex: Male
  Weight: 89 kg

DRUGS (1)
  1. RYDAPT [Suspect]
     Active Substance: MIDOSTAURIN
     Indication: Systemic mastocytosis
     Dosage: 50 MG, BID
     Route: 048
     Dates: start: 20250815, end: 20251108

REACTIONS (2)
  - Muscle spasms [Unknown]
  - Pain [Unknown]

NARRATIVE: CASE EVENT DATE: 20251102
